FAERS Safety Report 7762653-X (Version None)
Quarter: 2011Q3

REPORT INFORMATION
  Report Type: 
  Country: None (occurrence: None)
  Receive Date: 20110920
  Receipt Date: 20110909
  Transmission Date: 20111222
  Serious: Yes (Other)
  Sender: FDA-Public Use
  Company Number: CA-JNJFOC-20110707600

PATIENT
  Sex: Male
  Weight: 98 kg

DRUGS (5)
  1. REMICADE [Suspect]
     Route: 042
     Dates: start: 20100101
  2. REMICADE [Suspect]
     Indication: ANKYLOSING SPONDYLITIS
     Route: 042
     Dates: start: 20110718, end: 20110719
  3. VENTOLIN HFA [Concomitant]
  4. METFORMIN HCL [Concomitant]
  5. CLONAZEPAM [Concomitant]

REACTIONS (5)
  - LIP SWELLING [None]
  - INFUSION RELATED REACTION [None]
  - PRURITUS [None]
  - URTICARIA [None]
  - PANIC ATTACK [None]
